FAERS Safety Report 23937592 (Version 1)
Quarter: 2024Q2

REPORT INFORMATION
  Report Type: Report from Study
  Country: US (occurrence: US)
  Receive Date: 20240604
  Receipt Date: 20240604
  Transmission Date: 20240715
  Serious: Yes (Other)
  Sender: FDA-Public Use
  Company Number: US-ARGENX-2024-ARGX-US003846

PATIENT

DRUGS (1)
  1. VYVGART HYTRULO [Suspect]
     Active Substance: EFGARTIGIMOD ALFA\HYALURONIDASE-QVFC
     Indication: Myasthenia gravis
     Dosage: UNK , 1/WEEK, STRENGTH: 1,008MG AND 11,200 UNITS SUBCUTANEOUS OVER 30-90 SECONDS ONCE WEEKLY FOR 4 W
     Route: 058
     Dates: start: 202401

REACTIONS (2)
  - Myasthenia gravis [Unknown]
  - Stress [Unknown]
